FAERS Safety Report 11061636 (Version 1)
Quarter: 2015Q2

REPORT INFORMATION
  Report Type: Spontaneous
  Country: US (occurrence: None)
  Receive Date: 20150423
  Receipt Date: 20150423
  Transmission Date: 20150821
  Serious: No
  Sender: FDA-Public Use
  Company Number: None

PATIENT
  Age: 43 Year
  Sex: Female
  Weight: 58.51 kg

DRUGS (10)
  1. BACLOFEN. [Concomitant]
     Active Substance: BACLOFEN
  2. MULTI-VITAMIN [Concomitant]
     Active Substance: .ALPHA.-TOCOPHEROL ACETATE, DL-\ASCORBIC ACID\CYANOCOBALAMIN\FLUORIDE ION\FOLIC ACID\NIACIN\PYRIDOXINE\RIBOFLAVIN\THIAMINE\VITAMIN A\VITAMIN D
  3. ADVIL [Concomitant]
     Active Substance: IBUPROFEN
  4. XANAX [Concomitant]
     Active Substance: ALPRAZOLAM
  5. TEMAZAPAM [Concomitant]
  6. VITAMIN D3 [Concomitant]
     Active Substance: CHOLECALCIFEROL
  7. AMANTADINE [Suspect]
     Active Substance: AMANTADINE
     Indication: LETHARGY
     Dosage: 1 CAPSULE
     Route: 048
     Dates: start: 20141101, end: 20150421
  8. AMANTADINE [Suspect]
     Active Substance: AMANTADINE
     Indication: MULTIPLE SCLEROSIS
     Dosage: 1 CAPSULE
     Route: 048
     Dates: start: 20141101, end: 20150421
  9. GILENYA [Concomitant]
     Active Substance: FINGOLIMOD HYDROCHLORIDE
  10. TRAMADOL [Concomitant]
     Active Substance: TRAMADOL

REACTIONS (8)
  - Disturbance in attention [None]
  - Drug ineffective [None]
  - Dry mouth [None]
  - Constipation [None]
  - Irritability [None]
  - Mood swings [None]
  - Memory impairment [None]
  - Urinary retention [None]

NARRATIVE: CASE EVENT DATE: 20150401
